FAERS Safety Report 6625024-5 (Version None)
Quarter: 2010Q1

REPORT INFORMATION
  Report Type: 
  Country: None (occurrence: None)
  Receive Date: 20100310
  Receipt Date: 20090923
  Transmission Date: 20100710
  Serious: No
  Sender: FDA-Public Use
  Company Number: US-BIOGENIDEC-2009BI030528

PATIENT
  Age: 34 Year
  Sex: Female

DRUGS (2)
  1. AVONEX [Suspect]
     Indication: MULTIPLE SCLEROSIS
     Route: 030
     Dates: start: 19970101, end: 20040101
  2. AVONEX [Suspect]
     Route: 030
     Dates: start: 20040101

REACTIONS (4)
  - INFLUENZA LIKE ILLNESS [None]
  - NEURALGIA [None]
  - OPTIC NEURITIS [None]
  - RESORPTION BONE INCREASED [None]
